FAERS Safety Report 4806072-4 (Version None)
Quarter: 2005Q4

REPORT INFORMATION
  Report Type: 
  Country: None (occurrence: None)
  Receive Date: 20051021
  Receipt Date: 20051005
  Transmission Date: 20060501
  Serious: Yes (Other)
  Sender: FDA-Public Use
  Company Number: US-ROCHE-420207

PATIENT
  Age: 29 Year
  Sex: Female

DRUGS (2)
  1. ACCUTANE [Suspect]
     Indication: DRUG USE FOR UNKNOWN INDICATION
     Route: 048
     Dates: start: 19950101, end: 19950715
  2. ACCUTANE [Suspect]
     Route: 048
     Dates: start: 19960315, end: 19960615

REACTIONS (3)
  - HIRSUTISM [None]
  - INFERTILITY [None]
  - POLYCYSTIC OVARIES [None]
